FAERS Safety Report 18435953 (Version 1)
Quarter: 2020Q4

REPORT INFORMATION
  Report Type: Spontaneous
  Country: US (occurrence: US)
  Receive Date: 20201028
  Receipt Date: 20201028
  Transmission Date: 20210114
  Serious: Yes (Life-Threatening, Hospitalization)
  Sender: FDA-Public Use
  Company Number: None

PATIENT
  Age: 84 Year
  Sex: Female
  Weight: 63.2 kg

DRUGS (11)
  1. EPHEDRINE. [Concomitant]
     Active Substance: EPHEDRINE
     Dates: start: 20201008, end: 20201008
  2. FENTANYL. [Concomitant]
     Active Substance: FENTANYL
     Dates: start: 20201001, end: 20201008
  3. PANTOPRAZOLE [Concomitant]
     Active Substance: PANTOPRAZOLE
     Dates: start: 20201007, end: 20201021
  4. LEVOFLOXACIN. [Suspect]
     Active Substance: LEVOFLOXACIN
     Indication: GASTROINTESTINAL DISORDER
     Dosage: ?          OTHER FREQUENCY:EVERY 48 HOURS;?
     Route: 042
     Dates: start: 20201007, end: 20201011
  5. ROCURONIUM [Concomitant]
     Active Substance: ROCURONIUM BROMIDE
     Dates: start: 20201008, end: 20201008
  6. HEPARIN [Concomitant]
     Active Substance: HEPARIN SODIUM
     Dates: start: 20201001, end: 20201020
  7. METOPROLOL. [Concomitant]
     Active Substance: METOPROLOL
     Dates: start: 20201005, end: 20201021
  8. NEOSTIGMINE. [Concomitant]
     Active Substance: NEOSTIGMINE METHYLSULFATE
     Dates: start: 20201008, end: 20201008
  9. METRONIDAZOLE. [Concomitant]
     Active Substance: METRONIDAZOLE
     Dates: start: 20201005, end: 20201018
  10. PHENYLEPHRINE [Concomitant]
     Active Substance: PHENYLEPHRINE HYDROCHLORIDE
     Dates: start: 20201008, end: 20201008
  11. PROPOFOL. [Concomitant]
     Active Substance: PROPOFOL
     Dates: start: 20201008, end: 20201008

REACTIONS (7)
  - Confusional state [None]
  - Tachypnoea [None]
  - Metabolic acidosis [None]
  - Respiratory alkalosis [None]
  - Emotional distress [None]
  - Disorientation [None]
  - White blood cell count increased [None]

NARRATIVE: CASE EVENT DATE: 20201010
